FAERS Safety Report 23171227 (Version 3)
Quarter: 2024Q3

REPORT INFORMATION
  Report Type: Report from Study
  Country: US (occurrence: US)
  Receive Date: 20231110
  Receipt Date: 20240925
  Transmission Date: 20241016
  Serious: Yes (Death, Hospitalization, Other)
  Sender: AMNEAL
  Company Number: US-AMNEAL PHARMACEUTICALS-2023-AMRX-03896

PATIENT
  Sex: Female

DRUGS (2)
  1. CARBIDOPA\LEVODOPA [Suspect]
     Active Substance: CARBIDOPA\LEVODOPA
     Indication: Product used for unknown indication
     Dosage: 10 CAPSULES, QD (48.75/195 MG) 4 CAPS IN THE MORNING 3 CAPS IN THE AFTERNOON AND 3 CAPS AT BEDTIME)
     Route: 048
  2. CARBIDOPA\LEVODOPA [Suspect]
     Active Substance: CARBIDOPA\LEVODOPA
     Dosage: 10 CAPSULES, QD (48.75/195 MG) 4 CAPS IN THE MORNING 3 CAPS IN THE EVENING AND 3 CAPS AT BEDTIME)
     Route: 048

REACTIONS (3)
  - Death [Fatal]
  - Adverse event [Unknown]
  - COVID-19 [Recovering/Resolving]
